FAERS Safety Report 6218352-9 (Version None)
Quarter: 2009Q2

REPORT INFORMATION
  Report Type: 
  Country: None (occurrence: None)
  Receive Date: 20090608
  Receipt Date: 20090529
  Transmission Date: 20091009
  Serious: Yes (Other)
  Sender: FDA-Public Use
  Company Number: A0787377A

PATIENT
  Age: 58 Year
  Sex: Female

DRUGS (2)
  1. AVANDIA [Suspect]
     Dosage: 2MG PER DAY
     Route: 048
     Dates: start: 20070101, end: 20090101
  2. NO CONCURRENT MEDICATION [Concomitant]

REACTIONS (6)
  - ANKLE FRACTURE [None]
  - ARTHRALGIA [None]
  - ARTHROPATHY [None]
  - COUGH [None]
  - FALL [None]
  - NASOPHARYNGITIS [None]
